FAERS Safety Report 6931903-1 (Version None)
Quarter: 2010Q3

REPORT INFORMATION
  Report Type: 
  Country: None (occurrence: None)
  Receive Date: 20100819
  Receipt Date: 20100810
  Transmission Date: 20110219
  Serious: Yes (Other)
  Sender: FDA-Public Use
  Company Number: US-PFIZER INC-2010101234

PATIENT
  Sex: Female
  Weight: 70.3 kg

DRUGS (6)
  1. LIPITOR [Suspect]
     Indication: MYOCARDIAL INFARCTION
     Dosage: 40 MG, 1X/DAY
     Route: 048
     Dates: start: 20040701, end: 20100701
  2. LIPITOR [Suspect]
     Indication: CARDIAC OPERATION
  3. LABETALOL [Concomitant]
     Indication: HYPERTENSION
     Dosage: 100 MG, 2X/DAY
  4. QUINAPRIL [Concomitant]
     Indication: HYPERTENSION
     Dosage: 5 MG, 1X/DAY
  5. LEVOTHYROXINE [Concomitant]
     Indication: THYROID DISORDER
     Dosage: UNK
  6. ZOLOFT [Concomitant]
     Dosage: UNK

REACTIONS (2)
  - HEADACHE [None]
  - VOMITING [None]
